FAERS Safety Report 21788734 (Version 2)
Quarter: 2023Q4

REPORT INFORMATION
  Report Type: Spontaneous
  Country: US (occurrence: US)
  Receive Date: 20221228
  Receipt Date: 20231219
  Transmission Date: 20240110
  Serious: No
  Sender: FDA-Public Use
  Company Number: US-PFIZER INC-202201394120

PATIENT

DRUGS (2)
  1. LEVOXYL [Suspect]
     Active Substance: LEVOTHYROXINE SODIUM
     Indication: Thyroid disorder
     Dosage: 25 UG
  2. LEVOXYL [Suspect]
     Active Substance: LEVOTHYROXINE SODIUM
     Dosage: 50 UG

REACTIONS (3)
  - Pruritus [Not Recovered/Not Resolved]
  - Rash [Recovering/Resolving]
  - Product colour issue [Unknown]

NARRATIVE: CASE EVENT DATE: 20220101
